FAERS Safety Report 5055125-7 (Version None)
Quarter: 2006Q2

REPORT INFORMATION
  Report Type: 
  Country: None (occurrence: None)
  Receive Date: 20060616
  Receipt Date: 20060314
  Transmission Date: 20061013
  Serious: No
  Sender: FDA-Public Use
  Company Number: 223056

PATIENT

DRUGS (1)
  1. AVASTIN [Suspect]
     Indication: DRUG USE FOR UNKNOWN INDICATION

REACTIONS (2)
  - HYPERTENSION [None]
  - INFUSION RELATED REACTION [None]
